FAERS Safety Report 4641199-1 (Version None)
Quarter: 2005Q2

REPORT INFORMATION
  Report Type: 
  Country: None (occurrence: None)
  Receive Date: 20050419
  Receipt Date: 20050419
  Transmission Date: 20051028
  Serious: Yes (Other)
  Sender: FDA-Public Use
  Company Number: None

PATIENT
  Age: 31 Year
  Sex: Female
  Weight: 54.4316 kg

DRUGS (1)
  1. DEPO-PROVERA [Suspect]
     Indication: CONTRACEPTION
     Dates: start: 20040901, end: 20041201

REACTIONS (5)
  - AMENORRHOEA [None]
  - DEPRESSION [None]
  - INCREASED APPETITE [None]
  - SELF ESTEEM DECREASED [None]
  - WEIGHT INCREASED [None]
